FAERS Safety Report 5823057-X (Version None)
Quarter: 2008Q3

REPORT INFORMATION
  Report Type: 
  Country: None (occurrence: None)
  Receive Date: 20080725
  Receipt Date: 20070820
  Transmission Date: 20090109
  Serious: No
  Sender: FDA-Public Use
  Company Number: US-AMGEN-KDL229594

PATIENT
  Sex: Female
  Weight: 96 kg

DRUGS (26)
  1. PROCRIT [Suspect]
     Indication: ANAEMIA OF MALIGNANT DISEASE
     Route: 058
     Dates: start: 20070105, end: 20070417
  2. SINGULAIR [Concomitant]
     Route: 048
  3. METOPROLOL TARTRATE [Concomitant]
     Route: 048
  4. CALCIUM [Concomitant]
     Route: 048
  5. MULTI-VITAMINS [Concomitant]
     Route: 048
  6. VITAMIN B6 [Concomitant]
     Route: 048
  7. PRILOSEC [Concomitant]
     Route: 048
  8. VITAMIN D [Concomitant]
     Route: 048
  9. ASCORBIC ACID [Concomitant]
     Route: 048
  10. LEVOTHYROXINE SODIUM [Concomitant]
     Route: 048
  11. PREDNISONE TAB [Concomitant]
  12. TYLENOL [Concomitant]
     Route: 048
  13. ALPRAZOLAM [Concomitant]
     Route: 048
     Dates: end: 20070309
  14. COMPAZINE [Concomitant]
     Route: 048
  15. AUGMENTIN '125' [Concomitant]
     Dates: end: 20070213
  16. ZOLOFT [Concomitant]
     Dates: end: 20070309
  17. DARVOCET-N 100 [Concomitant]
     Route: 048
  18. ACYCLOVIR [Concomitant]
     Route: 048
     Dates: end: 20070309
  19. NEURONTIN [Concomitant]
     Route: 048
     Dates: end: 20070309
  20. KEFLEX [Concomitant]
     Route: 048
     Dates: end: 20070309
  21. CARBOPLATIN [Concomitant]
  22. ALOXI [Concomitant]
  23. PACLITAXEL [Concomitant]
  24. DIPHENHYDRAMINE HYDROCHLORIDE [Concomitant]
  25. CIMETIDINE [Concomitant]
  26. DEXAMETHASONE [Concomitant]

REACTIONS (1)
  - DRUG INEFFECTIVE [None]
